FAERS Safety Report 5901641-2 (Version None)
Quarter: 2008Q3

REPORT INFORMATION
  Report Type: 
  Country: None (occurrence: None)
  Receive Date: 20080929
  Receipt Date: 20080923
  Transmission Date: 20090109
  Serious: No
  Sender: FDA-Public Use
  Company Number: MX-MERCK-0809MEX00024B1

PATIENT
  Age: 0 Day
  Sex: Male
  Weight: 2 kg

DRUGS (3)
  1. ALDOMET [Suspect]
     Indication: HYPERTENSION
     Route: 064
     Dates: start: 20080801
  2. HYDRALAZINE [Concomitant]
     Indication: HYPERTENSION
     Route: 064
     Dates: start: 20080801
  3. IRON POLYMALTOSE [Concomitant]
     Indication: MEDICAL DIET
     Route: 064
     Dates: start: 20080101, end: 20080903

REACTIONS (2)
  - PREMATURE BABY [None]
  - SMALL FOR DATES BABY [None]
